FAERS Safety Report 6219086-7 (Version None)
Quarter: 2009Q2

REPORT INFORMATION
  Report Type: 
  Country: None (occurrence: None)
  Receive Date: 20090609
  Receipt Date: 20090601
  Transmission Date: 20091009
  Serious: Yes (Life-Threatening, Hospitalization, Other)
  Sender: FDA-Public Use
  Company Number: US-PFIZER INC-2009192454

PATIENT
  Sex: Male
  Weight: 68.481 kg

DRUGS (1)
  1. SUTENT [Suspect]
     Indication: RENAL CANCER
     Dosage: 25 MG, 1X/DAY
     Dates: start: 20080401, end: 20090318

REACTIONS (3)
  - ABDOMINAL ADHESIONS [None]
  - SCOLIOSIS [None]
  - SMALL INTESTINAL PERFORATION [None]
